FAERS Safety Report 15388942 (Version 3)
Quarter: 2018Q4

REPORT INFORMATION
  Report Type: Report from Study
  Country: None (occurrence: US)
  Receive Date: 20180917
  Receipt Date: 20181207
  Transmission Date: 20190204
  Serious: Yes (Death, Hospitalization, Other)
  Sender: FDA-Public Use
  Company Number: US-ABBVIE-18K-163-2439460-00

PATIENT
  Age: 85 Year
  Sex: Female

DRUGS (1)
  1. HUMIRA [Suspect]
     Active Substance: ADALIMUMAB
     Indication: ANKYLOSING SPONDYLITIS
     Route: 058

REACTIONS (7)
  - Spinal fracture [Unknown]
  - Myocardial infarction [Unknown]
  - Fall [Recovering/Resolving]
  - Cardiac arrest [Unknown]
  - Cerebrovascular accident [Fatal]
  - Cervical vertebral fracture [Recovering/Resolving]
  - Procedural complication [Unknown]

NARRATIVE: CASE EVENT DATE: 201806
